FAERS Safety Report 5557623-6 (Version None)
Quarter: 2007Q4

REPORT INFORMATION
  Report Type: 
  Country: None (occurrence: None)
  Receive Date: 20071214
  Receipt Date: 20071213
  Transmission Date: 20080405
  Serious: Yes (Hospitalization)
  Sender: FDA-Public Use
  Company Number: B0498168A

PATIENT
  Age: 42 Year
  Sex: Male

DRUGS (3)
  1. VALACYCLOVIR [Suspect]
     Indication: HERPES ZOSTER
     Dosage: 1G THREE TIMES PER DAY
     Route: 048
     Dates: start: 20071124, end: 20071125
  2. VALACYCLOVIR [Suspect]
     Dosage: 1G TWICE PER DAY
     Route: 048
     Dates: start: 20071126, end: 20071129
  3. NO CONCURRENT MEDICATION [Concomitant]

REACTIONS (1)
  - AZOTAEMIA [None]
